FAERS Safety Report 14986729 (Version 2)
Quarter: 2018Q2

REPORT INFORMATION
  Report Type: Report from Study
  Country: US (occurrence: US)
  Receive Date: 20180608
  Receipt Date: 20180619
  Transmission Date: 20180711
  Serious: Yes (Death, Other)
  Sender: FDA-Public Use
  Company Number: US-ROCHE-1984805

PATIENT

DRUGS (3)
  1. VINORELBINE [Suspect]
     Active Substance: VINORELBINE\VINORELBINE TARTRATE
     Indication: BREAST CANCER METASTATIC
     Dosage: ON DAY 1 AND DAY 8
     Route: 042
  2. CAPECITABINE. [Suspect]
     Active Substance: CAPECITABINE
     Indication: BREAST CANCER METASTATIC
     Dosage: PER SQUARE METER OF BODY-SURFACE AREA DAILY (DIVIDED INTO TWO DOSES) FOR 14 DAYS, REPEATED EVERY 21
     Route: 048
  3. ERIBULIN MESYLATE [Suspect]
     Active Substance: ERIBULIN MESYLATE
     Indication: BREAST CANCER METASTATIC
     Dosage: ON DAY 1 AND DAY 8
     Route: 042

REACTIONS (15)
  - Anaemia [Unknown]
  - Nausea [Unknown]
  - Vomiting [Unknown]
  - Neutropenic infection [Unknown]
  - Alanine aminotransferase increased [Unknown]
  - Neutropenic sepsis [Unknown]
  - Neutropenia [Unknown]
  - Dyspnoea [Fatal]
  - White blood cell count decreased [Unknown]
  - Febrile neutropenia [Unknown]
  - Fatigue [Unknown]
  - Headache [Unknown]
  - Palmar-plantar erythrodysaesthesia syndrome [Unknown]
  - Platelet count decreased [Unknown]
  - Granulocytopenia [Unknown]
